FAERS Safety Report 11176186 (Version 1)
Quarter: 2015Q2

REPORT INFORMATION
  Report Type: Spontaneous
  Country: US (occurrence: None)
  Receive Date: 20150608
  Receipt Date: 20150608
  Transmission Date: 20150821
  Serious: Yes (Disabling)
  Sender: FDA-Public Use
  Company Number: None

PATIENT
  Age: 48 Year
  Sex: Male
  Weight: 88.45 kg

DRUGS (8)
  1. MEXILITINE [Concomitant]
  2. PERCOCET [Concomitant]
     Active Substance: ACETAMINOPHEN\OXYCODONE HYDROCHLORIDE
  3. AVELOX [Suspect]
     Active Substance: MOXIFLOXACIN HYDROCHLORIDE
     Indication: TOOTH INFECTION
     Dosage: 1 TABLET ONCE DAILY TAKEN BY MOUTH
     Route: 048
  4. MULTI VITIMAN [Concomitant]
  5. ASPIRIN. [Concomitant]
     Active Substance: ASPIRIN
  6. METROPOLOL [Concomitant]
     Active Substance: METOPROLOL
  7. LORAZIPAM [Concomitant]
  8. SLO-MAG (MAGNESIUM CHLORIDE ANHYDROUS) [Concomitant]
     Active Substance: MAGNESIUM CHLORIDE ANHYDROUS

REACTIONS (8)
  - Abasia [None]
  - Nausea [None]
  - Pain in extremity [None]
  - Burning sensation [None]
  - Fatigue [None]
  - Emotional disorder [None]
  - Paraesthesia [None]
  - Tendon pain [None]

NARRATIVE: CASE EVENT DATE: 20150602
